FAERS Safety Report 18103414 (Version 1)
Quarter: 2020Q3

REPORT INFORMATION
  Report Type: Spontaneous
  Country: US (occurrence: US)
  Receive Date: 20200731
  Receipt Date: 20200731
  Transmission Date: 20201103
  Serious: Yes (Life-Threatening, Hospitalization)
  Sender: FDA-Public Use
  Company Number: None

PATIENT
  Age: 57 Year
  Sex: Male
  Weight: 102.15 kg

DRUGS (5)
  1. JARDIANCE [Concomitant]
     Active Substance: EMPAGLIFLOZIN
  2. BYDUREON [Suspect]
     Active Substance: EXENATIDE
     Indication: DIABETES MELLITUS
     Dosage: ?          QUANTITY:12 INJECTION(S);OTHER FREQUENCY:ONCE A WEEK;OTHER ROUTE:INJECTION INTO STOMACH?
     Dates: end: 20200611
  3. GLYBURIDE. [Concomitant]
     Active Substance: GLYBURIDE
  4. METFORMIN [Concomitant]
     Active Substance: METFORMIN HYDROCHLORIDE
  5. VITAMINS [Concomitant]
     Active Substance: VITAMINS

REACTIONS (3)
  - Gastric infection [None]
  - Asthenia [None]
  - Recalled product administered [None]

NARRATIVE: CASE EVENT DATE: 20200614
